FAERS Safety Report 6731014-4 (Version None)
Quarter: 2010Q2

REPORT INFORMATION
  Report Type: 
  Country: None (occurrence: None)
  Receive Date: 20100518
  Receipt Date: 20100422
  Transmission Date: 20101027
  Serious: No
  Sender: FDA-Public Use
  Company Number: US-BAYER-201021858NA

PATIENT
  Age: 33 Year
  Sex: Male
  Weight: 91 kg

DRUGS (1)
  1. MAGNEVIST [Suspect]
     Indication: NUCLEAR MAGNETIC RESONANCE IMAGING BRAIN
     Dosage: TOTAL DAILY DOSE: 19 ML  UNIT DOSE: 20 ML
     Route: 042
     Dates: start: 20100421, end: 20100421

REACTIONS (3)
  - FLUSHING [None]
  - NAUSEA [None]
  - VOMITING [None]
